FAERS Safety Report 9849386 (Version 1)
Quarter: 2013Q4

REPORT INFORMATION
  Report Type: Spontaneous
  Country: US (occurrence: None)
  Receive Date: 20131231
  Receipt Date: 20131231
  Transmission Date: 20140711
  Serious: Yes (Hospitalization)
  Sender: FDA-Public Use
  Company Number: USA/USA/13/0035217

PATIENT
  Age: 50 Year
  Sex: Female

DRUGS (6)
  1. DONEPEZIL HYDROCHLORIDE [Suspect]
     Indication: COGNITIVE DISORDER
  2. DONEPEZIL HYDROCHLORIDE [Suspect]
     Indication: CONDITION AGGRAVATED
  3. DALFAMPRIDINE [Suspect]
     Indication: GAIT DISTURBANCE
  4. GLATIRAMER (GLATIRAMER) [Concomitant]
  5. BACLOFEN (BACLOFEN) [Concomitant]
  6. LEVAQUIN (LEVOFLOXACIN) [Concomitant]

REACTIONS (1)
  - Grand mal convulsion [None]
